FAERS Safety Report 6165296-7 (Version None)
Quarter: 2009Q2

REPORT INFORMATION
  Report Type: 
  Country: None (occurrence: None)
  Receive Date: 20090423
  Receipt Date: 20090415
  Transmission Date: 20091009
  Serious: No
  Sender: FDA-Public Use
  Company Number: US-ASTRAZENECA-2009UW09479

PATIENT
  Age: 27237 Day
  Sex: Female

DRUGS (1)
  1. CRESTOR [Suspect]
     Dosage: 1/2 OF A 10 MG TABLET
     Route: 048
     Dates: start: 20090402

REACTIONS (1)
  - DIZZINESS [None]
